FAERS Safety Report 21230926 (Version 1)
Quarter: 2022Q3

REPORT INFORMATION
  Report Type: Report from Study
  Country: DE (occurrence: DE)
  Receive Date: 20220819
  Receipt Date: 20220819
  Transmission Date: 20221027
  Serious: Yes (Other)
  Sender: FDA-Public Use
  Company Number: DE-SUN PHARMACEUTICAL INDUSTRIES LTD-2022R1-348716

PATIENT
  Age: 6 Year
  Sex: Male

DRUGS (5)
  1. AMPICILLIN [Suspect]
     Active Substance: AMPICILLIN
     Indication: Antibiotic therapy
     Route: 065
  2. ACYCLOVIR [Suspect]
     Active Substance: ACYCLOVIR
     Indication: Antibiotic therapy
     Route: 065
  3. CEFOTAXIME [Suspect]
     Active Substance: CEFOTAXIME SODIUM
     Indication: Antibiotic therapy
     Dosage: 1.3 GRAM
     Route: 042
  4. DEXAMETHASONE [Suspect]
     Active Substance: DEXAMETHASONE
     Indication: Steroid therapy
     Dosage: 4 MILLIGRAM
     Route: 042
  5. PREDNISOLONE [Suspect]
     Active Substance: PREDNISOLONE
     Indication: Steroid therapy
     Dosage: 30 MILLIGRAM
     Route: 048

REACTIONS (1)
  - Cerebrovascular accident [Unknown]
